FAERS Safety Report 6880261-X (Version None)
Quarter: 2010Q3

REPORT INFORMATION
  Report Type: 
  Country: None (occurrence: None)
  Receive Date: 20100728
  Receipt Date: 20100714
  Transmission Date: 20110219
  Serious: No
  Sender: FDA-Public Use
  Company Number: US-PFIZER INC-2010070519

PATIENT
  Sex: Female
  Weight: 90.703 kg

DRUGS (3)
  1. CHANTIX [Suspect]
     Indication: SMOKING CESSATION THERAPY
     Dosage: 0.5 MG, 1X/DAY
     Route: 048
     Dates: start: 20100524
  2. LISINOPRIL [Concomitant]
     Indication: BLOOD CHOLESTEROL INCREASED
     Dosage: 40 MG, UNK
  3. ALLEGRA [Concomitant]
     Indication: HYPERSENSITIVITY
     Dosage: UNK

REACTIONS (3)
  - CONSTIPATION [None]
  - DISCOMFORT [None]
  - HEPATIC PAIN [None]
